FAERS Safety Report 6925989-8 (Version None)
Quarter: 2010Q3

REPORT INFORMATION
  Report Type: 
  Country: None (occurrence: None)
  Receive Date: 20100816
  Receipt Date: 20100804
  Transmission Date: 20110219
  Serious: Yes (Other)
  Sender: FDA-Public Use
  Company Number: BR-PFIZER INC-2010097967

PATIENT
  Age: 61 Year
  Sex: Female
  Weight: 57 kg

DRUGS (6)
  1. CHAMPIX [Suspect]
     Indication: TOBACCO USER
     Dosage: UNK
     Route: 048
     Dates: start: 20100712
  2. ATENOLOL [Concomitant]
     Indication: HYPERTENSION
     Dosage: 50 MG, 1X/DAY
     Dates: start: 19890101
  3. LOSARTAN POTASSIUM AND HYDROCHLOROTHIAZIDE [Concomitant]
     Indication: HYPERTENSION
     Dosage: UNK
     Dates: start: 20090101
  4. SIMVASTATIN [Concomitant]
     Indication: BLOOD CHOLESTEROL INCREASED
     Dosage: UNK
     Dates: start: 20050101
  5. CLOPIDOGREL BISULFATE [Concomitant]
     Indication: ARTERIAL REPAIR
     Dosage: 75 MG, UNK
     Dates: start: 20100101
  6. SOMALGIN [Concomitant]
     Indication: ARTERIAL REPAIR
     Dosage: 100 MG, UNK

REACTIONS (1)
  - BLOOD PRESSURE DIASTOLIC DECREASED [None]
